FAERS Safety Report 13183160 (Version 1)
Quarter: 2017Q1

REPORT INFORMATION
  Report Type: Spontaneous
  Country: HU (occurrence: HU)
  Receive Date: 20170203
  Receipt Date: 20170203
  Transmission Date: 20170428
  Serious: Yes (Death)
  Sender: FDA-Public Use
  Company Number: HU-PFIZER INC-2016414270

PATIENT
  Age: 64 Year
  Sex: Female

DRUGS (1)
  1. SUTENT [Suspect]
     Active Substance: SUNITINIB MALATE
     Indication: CLEAR CELL RENAL CELL CARCINOMA
     Dosage: 50 MG, DAILY, ACCORDING TO 4 WEEKS TAKING, 2 WEEKS BREAK SCHEMA
     Route: 048
     Dates: start: 20160728

REACTIONS (10)
  - Stomatitis [Unknown]
  - Abdominal pain upper [Unknown]
  - Death [Fatal]
  - Condition aggravated [Unknown]
  - Yellow skin [Unknown]
  - Pain [Unknown]
  - Diarrhoea [Unknown]
  - Face oedema [Unknown]
  - Palmar-plantar erythrodysaesthesia syndrome [Unknown]
  - Weight decreased [Unknown]

NARRATIVE: CASE EVENT DATE: 2016
